FAERS Safety Report 23036037 (Version 1)
Quarter: 2023Q4

REPORT INFORMATION
  Report Type: Spontaneous
  Country: US (occurrence: US)
  Receive Date: 20231006
  Receipt Date: 20231006
  Transmission Date: 20240110
  Serious: Yes (Other)
  Sender: FDA-Public Use
  Company Number: US-ORGANON-O2310USA000412

PATIENT
  Sex: Female
  Weight: 97.5 kg

DRUGS (1)
  1. NEXPLANON [Suspect]
     Active Substance: ETONOGESTREL
     Indication: Menstrual cycle management
     Dosage: 1 IMPLANT OF 68MG IN THE LEFT ARM
     Route: 059
     Dates: start: 20230212, end: 20230713

REACTIONS (5)
  - Heavy menstrual bleeding [Recovered/Resolved]
  - Ovarian cyst [Unknown]
  - Skin odour abnormal [Not Recovered/Not Resolved]
  - Product use in unapproved indication [Unknown]
  - Drug effective for unapproved indication [Unknown]

NARRATIVE: CASE EVENT DATE: 20230101
